FAERS Safety Report 17126464 (Version 1)
Quarter: 2019Q4

REPORT INFORMATION
  Report Type: Spontaneous
  Country: US (occurrence: US)
  Receive Date: 20191209
  Receipt Date: 20191209
  Transmission Date: 20200122
  Serious: No
  Sender: FDA-Public Use
  Company Number: US-UCBSA-2017011355

PATIENT
  Age: 30 Year
  Sex: Female

DRUGS (7)
  1. ZONISAMIDE. [Suspect]
     Active Substance: ZONISAMIDE
     Indication: PRODUCT USED FOR UNKNOWN INDICATION
     Dosage: 2 CAPSULES OF 100 MG, 2X/DAY (BID)
     Dates: start: 20151216, end: 2016
  2. VIMPAT [Suspect]
     Active Substance: LACOSAMIDE
     Indication: PRODUCT USED FOR UNKNOWN INDICATION
     Dosage: 200 MG, 2X/DAY (BID)
     Dates: start: 20160503
  3. KEPPRA [Suspect]
     Active Substance: LEVETIRACETAM
     Indication: SEIZURE PROPHYLAXIS
     Dosage: 2000 MG, 2X/DAY (BID)
     Dates: start: 20151216
  4. FOLIC ACID. [Concomitant]
     Active Substance: FOLIC ACID
     Indication: PRODUCT USED FOR UNKNOWN INDICATION
     Dosage: 1 MG, 1 TABLET, ONCE DAILY (QD)
     Dates: start: 20151216
  5. DEPAKOTE [Concomitant]
     Active Substance: DIVALPROEX SODIUM
     Indication: PRODUCT USED FOR UNKNOWN INDICATION
     Dosage: 500 MG ORAL TABLET
  6. TOPAMAX [Concomitant]
     Active Substance: TOPIRAMATE
     Indication: PRODUCT USED FOR UNKNOWN INDICATION
     Dosage: 200 MG ORAL TABLET
  7. KEPPRA [Suspect]
     Active Substance: LEVETIRACETAM
     Indication: OFF LABEL USE

REACTIONS (7)
  - Off label use [Unknown]
  - Affective disorder [Not Recovered/Not Resolved]
  - Prescribed overdose [Unknown]
  - Cognitive disorder [Unknown]
  - Irritability [Unknown]
  - Seizure [Not Recovered/Not Resolved]
  - Myoclonus [Unknown]

NARRATIVE: CASE EVENT DATE: 20151216
